FAERS Safety Report 14858728 (Version 1)
Quarter: 2018Q2

REPORT INFORMATION
  Report Type: Spontaneous
  Country: GB (occurrence: GB)
  Receive Date: 20180508
  Receipt Date: 20180508
  Transmission Date: 20180711
  Serious: Yes (Other)
  Sender: FDA-Public Use
  Company Number: PHHY2018GB002171

PATIENT
  Age: 39 Year
  Sex: Female
  Weight: 80 kg

DRUGS (1)
  1. DOXYCYCLINE. [Suspect]
     Active Substance: DOXYCYCLINE
     Indication: LOWER RESPIRATORY TRACT INFECTION
     Route: 048
     Dates: start: 20171227, end: 20171227

REACTIONS (3)
  - Hypertension [Recovered/Resolved]
  - Communication disorder [Recovered/Resolved]
  - Hypoaesthesia [Recovered/Resolved]

NARRATIVE: CASE EVENT DATE: 20171227
